FAERS Safety Report 7483419-4 (Version None)
Quarter: 2011Q2

REPORT INFORMATION
  Report Type: 
  Country: None (occurrence: None)
  Receive Date: 20110512
  Receipt Date: 20110512
  Transmission Date: 20111010
  Serious: No
  Sender: FDA-Public Use
  Company Number: None

PATIENT
  Age: 54 Year
  Sex: Male
  Weight: 106.5953 kg

DRUGS (2)
  1. SAVELLA [Suspect]
     Indication: MENTAL DISORDER
     Dosage: 1 MG 1 A DAY ORAL
     Route: 048
     Dates: start: 20100322, end: 20100323
  2. SAPHRIS [Suspect]
     Indication: MENTAL DISORDER
     Dosage: 5 MG 1 A DAY ORAL
     Route: 048
     Dates: start: 20100618

REACTIONS (2)
  - FEELING DRUNK [None]
  - BALANCE DISORDER [None]
